FAERS Safety Report 8287334-8 (Version None)
Quarter: 2012Q2

REPORT INFORMATION
  Report Type: 
  Country: None (occurrence: None)
  Receive Date: 20120411
  Receipt Date: 20120402
  Transmission Date: 20120825
  Serious: Yes (Hospitalization)
  Sender: FDA-Public Use
  Company Number: JPI-P-020509

PATIENT
  Age: 22 Year
  Sex: Male

DRUGS (2)
  1. XYREM [Suspect]
     Indication: MYOCLONUS
     Dosage: 3 GM (1 GM, 3 IN 1 D), ORAL 8 GM (4 GM, 2 IN 1 D), ORAL
     Route: 048
     Dates: start: 20120313, end: 20120101
  2. XYREM [Suspect]
     Indication: MYOCLONUS
     Dosage: 3 GM (1 GM, 3 IN 1 D), ORAL 8 GM (4 GM, 2 IN 1 D), ORAL
     Route: 048
     Dates: start: 20120101

REACTIONS (1)
  - IMMOBILE [None]
